FAERS Safety Report 24192307 (Version 2)
Quarter: 2024Q3

REPORT INFORMATION
  Report Type: Spontaneous
  Country: JP (occurrence: JP)
  Receive Date: 20240809
  Receipt Date: 20240820
  Transmission Date: 20241016
  Serious: No
  Sender: ALKEM
  Company Number: JP-ALKEM LABORATORIES LIMITED-JP-ALKEM-2024-17712

PATIENT
  Age: 30 Year
  Sex: Female
  Weight: 52 kg

DRUGS (14)
  1. ISONIAZID [Suspect]
     Active Substance: ISONIAZID
     Indication: Meningitis tuberculous
     Dosage: 200 MILLIGRAM, QD
     Route: 065
  2. ISONIAZID [Suspect]
     Active Substance: ISONIAZID
     Dosage: 300 MILLIGRAM, QD
     Route: 065
  3. ISONIAZID [Suspect]
     Active Substance: ISONIAZID
     Dosage: 500 MILLIGRAM, QD
     Route: 065
  4. ISONIAZID [Suspect]
     Active Substance: ISONIAZID
     Dosage: 100 MILLIGRAM (3 TIMES PER WEEK)
     Route: 037
  5. ISONIAZID [Suspect]
     Active Substance: ISONIAZID
     Dosage: UNK ( TAPERED TO ONCE A WEEK)
     Route: 065
  6. LEVOFLOXACIN [Suspect]
     Active Substance: LEVOFLOXACIN
     Indication: Meningitis tuberculous
     Dosage: 500 MILLIGRAM, QD
     Route: 065
  7. DEXAMETHASONE [Suspect]
     Active Substance: DEXAMETHASONE
     Indication: Meningitis tuberculous
     Dosage: 19.6 MILLIGRAM, QD
     Route: 065
  8. ETHAMBUTOL [Suspect]
     Active Substance: ETHAMBUTOL HYDROCHLORIDE
     Indication: Meningitis tuberculous
     Dosage: 750 MILLIGRAM, QD
     Route: 065
  9. HEPARIN [Suspect]
     Active Substance: HEPARIN SODIUM
     Indication: Cerebral infarction
     Dosage: 10000 UNITS, QD
     Route: 065
  10. MEROPENEM [Suspect]
     Active Substance: MEROPENEM
     Indication: Meningitis tuberculous
     Dosage: 6 GRAM, QD
     Route: 065
  11. PYRAZINAMIDE [Suspect]
     Active Substance: PYRAZINAMIDE
     Indication: Meningitis tuberculous
     Dosage: 1.2 GRAM, QD
     Route: 065
  12. RIFAMPIN [Suspect]
     Active Substance: RIFAMPIN
     Indication: Meningitis tuberculous
     Dosage: 450 MILLIGRAM, QD
     Route: 065
  13. ASPIRIN [Concomitant]
     Active Substance: ASPIRIN
     Indication: Prophylaxis
     Dosage: 100 MILLIGRAM, QD
     Route: 065
  14. STREPTOMYCIN [Concomitant]
     Active Substance: STREPTOMYCIN SULFATE
     Indication: Meningitis tuberculous
     Dosage: 1 GRAM, QD
     Route: 065

REACTIONS (2)
  - Exposure during pregnancy [Unknown]
  - Therapy non-responder [Unknown]
